FAERS Safety Report 15549748 (Version 3)
Quarter: 2020Q4

REPORT INFORMATION
  Report Type: Report from Study
  Country: DE (occurrence: DE)
  Receive Date: 20181025
  Receipt Date: 20201015
  Transmission Date: 20210113
  Serious: Yes (Hospitalization)
  Sender: FDA-Public Use
  Company Number: DE-ROCHE-2200560

PATIENT
  Age: 87 Year
  Sex: Male
  Weight: 85 kg

DRUGS (12)
  1. VEMURAFENIB. [Suspect]
     Active Substance: VEMURAFENIB
     Indication: MALIGNANT MELANOMA
     Dosage: DATE OF MOST RECENT DOSE OF VEMURAFENIB PRIOR TO SAE (FATIGUE AND GENERALIZED MUSCLE WEAKNESS): 15/O
     Route: 048
     Dates: start: 20181001
  2. XARELTO [Concomitant]
     Active Substance: RIVAROXABAN
     Dates: start: 2014
  3. SACUBITRIL [Concomitant]
     Active Substance: SACUBITRIL
     Dosage: 2-0-0-2
     Dates: start: 20181008, end: 20181118
  4. TORASEMIDE [Concomitant]
     Active Substance: TORSEMIDE
     Dates: start: 2014
  5. SACUBITRIL [Concomitant]
     Active Substance: SACUBITRIL
     Indication: HYPERTENSION
     Dates: start: 2017
  6. VALSARTAN. [Concomitant]
     Active Substance: VALSARTAN
     Dosage: 2-0-0-2
     Dates: start: 20181008, end: 20181118
  7. LERCANIDIPINE [Concomitant]
     Active Substance: LERCANIDIPINE
     Dates: start: 20181123, end: 20181211
  8. COBIMETINIB. [Suspect]
     Active Substance: COBIMETINIB
     Indication: MALIGNANT MELANOMA
     Dosage: DATE OF MOST RECENT DOSE OF COBIMETINIB PRIOR TO SAE (FATIGUE, GENERALIZED MUSCLE WEAKNESS  AND HYPE
     Route: 048
     Dates: start: 20181001
  9. ALLOPURINOL. [Concomitant]
     Active Substance: ALLOPURINOL
     Dates: start: 2012
  10. METOPROLOL. [Concomitant]
     Active Substance: METOPROLOL
     Dates: start: 2000
  11. COBIMETINIB. [Suspect]
     Active Substance: COBIMETINIB
     Dosage: LAST DOSE ADMINISTERED PRIOR TO SAE ONSET (HYPOTENSION): 20/NOV/2018
     Route: 048
     Dates: start: 20181002
  12. VALSARTAN. [Concomitant]
     Active Substance: VALSARTAN
     Dates: start: 2017

REACTIONS (4)
  - Fatigue [Not Recovered/Not Resolved]
  - Hypotension [Recovered/Resolved]
  - Hypertension [Not Recovered/Not Resolved]
  - Muscular weakness [Not Recovered/Not Resolved]

NARRATIVE: CASE EVENT DATE: 20181008
